FAERS Safety Report 11553999 (Version 1)
Quarter: 2015Q3

REPORT INFORMATION
  Report Type: Spontaneous
  Country: US (occurrence: US)
  Receive Date: 20150925
  Receipt Date: 20150925
  Transmission Date: 20151125
  Serious: No
  Sender: FDA-Public Use
  Company Number: US-BRISTOL-MYERS SQUIBB COMPANY-2001COU1062

PATIENT
  Age: 38 Year
  Sex: Female

DRUGS (1)
  1. COUMADIN [Suspect]
     Active Substance: WARFARIN SODIUM
     Indication: VENOUS THROMBOSIS
     Dosage: 10 MG AES#DOSE_FREQUENCY: DLY
     Route: 048
     Dates: start: 200105, end: 20010613

REACTIONS (1)
  - Pregnancy [Unknown]
